FAERS Safety Report 5355364-1 (Version None)
Quarter: 2007Q2

REPORT INFORMATION
  Report Type: 
  Country: None (occurrence: None)
  Receive Date: 20070611
  Receipt Date: 20070611
  Transmission Date: 20071010
  Serious: Yes (Other)
  Sender: FDA-Public Use
  Company Number: None

PATIENT
  Age: 41 Year
  Sex: Female
  Weight: 90.7194 kg

DRUGS (1)
  1. FENTANYL TRANSDERMAL SYSTEM [Suspect]
     Indication: PAIN
     Dosage: 75 MCG Q48 HR. TRANSDERMAL
     Route: 062

REACTIONS (6)
  - BLISTER [None]
  - ERYTHEMA [None]
  - NAUSEA [None]
  - PYREXIA [None]
  - SKIN REACTION [None]
  - VOMITING [None]
